FAERS Safety Report 10079700 (Version 1)
Quarter: 2014Q2

REPORT INFORMATION
  Report Type: Spontaneous
  Country: US (occurrence: US)
  Receive Date: 20140415
  Receipt Date: 20140415
  Transmission Date: 20141212
  Serious: No
  Sender: FDA-Public Use
  Company Number: US-BAUSCH-BL-2014-000535

PATIENT
  Age: 55 Year
  Sex: Female

DRUGS (1)
  1. LOTEMAX (LOTEPREDNOL ETABONATE OPHTHALMIC GEL 0.5%) [Suspect]
     Indication: PRODUCT USED FOR UNKNOWN INDICATION
     Dosage: UNKNOWN
     Route: 047

REACTIONS (5)
  - Eye pain [Unknown]
  - Eye inflammation [Unknown]
  - Eye swelling [Unknown]
  - Eye irritation [Unknown]
  - Drug ineffective [Unknown]
